FAERS Safety Report 21014153 (Version 2)
Quarter: 2022Q3

REPORT INFORMATION
  Report Type: Spontaneous
  Country: US (occurrence: US)
  Receive Date: 20220627
  Receipt Date: 20220927
  Transmission Date: 20221027
  Serious: No
  Sender: FDA-Public Use
  Company Number: US-SA-SAC20220622001022

PATIENT
  Age: 31 Year
  Sex: Male

DRUGS (1)
  1. DUPIXENT [Suspect]
     Active Substance: DUPILUMAB
     Dosage: 300 MG
     Route: 058
     Dates: start: 202203

REACTIONS (6)
  - Erythema [Unknown]
  - Condition aggravated [Unknown]
  - Product dose omission issue [Unknown]
  - Skin exfoliation [Unknown]
  - Rash [Unknown]
  - Condition aggravated [Unknown]
